FAERS Safety Report 5166833-1 (Version None)
Quarter: 2006Q4

REPORT INFORMATION
  Report Type: 
  Country: None (occurrence: None)
  Receive Date: 20061204
  Receipt Date: 20061204
  Transmission Date: 20070319
  Serious: Yes (Life-Threatening)
  Sender: FDA-Public Use
  Company Number: None

PATIENT
  Age: 66 Year
  Sex: Female
  Weight: 57 kg

DRUGS (1)
  1. DILTIAZEM HCL [Suspect]
     Indication: HYPERTENSION
     Dosage: PO
     Route: 048
     Dates: start: 20061121, end: 20061128

REACTIONS (5)
  - ASTHENIA [None]
  - CONFUSIONAL STATE [None]
  - DYSARTHRIA [None]
  - SHOCK [None]
  - STEVENS-JOHNSON SYNDROME [None]
